FAERS Safety Report 25596808 (Version 2)
Quarter: 2025Q3

REPORT INFORMATION
  Report Type: Report from Study
  Country: PE (occurrence: PE)
  Receive Date: 20250723
  Receipt Date: 20250728
  Transmission Date: 20251021
  Serious: Yes (Hospitalization)
  Sender: BIOVITRUM
  Company Number: PE-AstraZeneca-CH-00912500A

PATIENT
  Age: 6 Month
  Sex: Female

DRUGS (5)
  1. PALIVIZUMAB [Suspect]
     Active Substance: PALIVIZUMAB
     Indication: Antiviral prophylaxis
     Route: 030
     Dates: start: 20250220
  2. PALIVIZUMAB [Suspect]
     Active Substance: PALIVIZUMAB
     Route: 030
     Dates: start: 20250321
  3. PALIVIZUMAB [Suspect]
     Active Substance: PALIVIZUMAB
     Route: 030
     Dates: start: 20250421
  4. PALIVIZUMAB [Suspect]
     Active Substance: PALIVIZUMAB
     Route: 030
     Dates: start: 20250530
  5. PALIVIZUMAB [Suspect]
     Active Substance: PALIVIZUMAB
     Route: 030
     Dates: start: 20250721

REACTIONS (4)
  - Illness [Unknown]
  - Bronchitis [Recovered/Resolved]
  - Parainfluenzae virus infection [Recovered/Resolved]
  - Respiratory syncytial virus infection [Recovered/Resolved]

NARRATIVE: CASE EVENT DATE: 20250609
